FAERS Safety Report 8091398 (Version 2)
Quarter: 2012Q4

REPORT INFORMATION
  Report Type: 
  Country: GR (occurrence: GR)
  Receive Date: 20110816
  Receipt Date: 20121116
  Transmission Date: 20130627
  Serious: Yes (Hospitalization)
  Sender: FDA-Public Use
  Company Number: GR-RANBAXY-2011R1-46843

PATIENT
  Age: 51 Year
  Sex: Male

DRUGS (1)
  1. CEFACLOR [Suspect]
     Indication: PHARYNGITIS
     Dosage: UNK
     Route: 048

REACTIONS (1)
  - Kounis syndrome [Recovering/Resolving]
